FAERS Safety Report 7119019-5 (Version None)
Quarter: 2010Q4

REPORT INFORMATION
  Report Type: 
  Country: None (occurrence: None)
  Receive Date: 20101123
  Receipt Date: 20101117
  Transmission Date: 20110411
  Serious: Yes (Other)
  Sender: FDA-Public Use
  Company Number: A0893026A

PATIENT
  Age: 68 Year
  Sex: Male

DRUGS (7)
  1. ALTABAX [Suspect]
     Indication: STAPHYLOCOCCAL INFECTION
     Dosage: 1APP TWICE PER DAY
     Route: 045
     Dates: start: 20100601, end: 20100602
  2. GLIPIZIDE [Concomitant]
  3. ACTOS [Concomitant]
  4. METFORMIN HCL [Concomitant]
  5. LISINOPRIL [Concomitant]
  6. ZOLOFT [Concomitant]
  7. LIPITOR [Concomitant]

REACTIONS (3)
  - ANOSMIA [None]
  - DECREASED INTEREST [None]
  - DRUG ADMINISTRATION ERROR [None]
